FAERS Safety Report 4369878-4 (Version None)
Quarter: 2004Q2

REPORT INFORMATION
  Report Type: 
  Country: None (occurrence: None)
  Receive Date: 20040527
  Receipt Date: 20040511
  Transmission Date: 20050107
  Serious: Yes (Death)
  Sender: FDA-Public Use
  Company Number: GBS040514921

PATIENT
  Sex: Female

DRUGS (3)
  1. FLUOXETINE [Suspect]
     Dosage: 20 MG/2 DAY
  2. PREMARIN [Concomitant]
  3. BUSPIRONE [Concomitant]

REACTIONS (2)
  - SHOCK [None]
  - THERMAL BURN [None]
